FAERS Safety Report 14526786 (Version 4)
Quarter: 2018Q2

REPORT INFORMATION
  Report Type: Spontaneous
  Country: JP (occurrence: JP)
  Receive Date: 20180213
  Receipt Date: 20180511
  Transmission Date: 20180711
  Serious: Yes (Other)
  Sender: FDA-Public Use
  Company Number: JP-BRISTOL-MYERS SQUIBB COMPANY-BMS-2017-019069

PATIENT
  Age: 26 Year
  Sex: Female

DRUGS (5)
  1. YERVOY [Suspect]
     Active Substance: IPILIMUMAB
     Indication: PRODUCT USED FOR UNKNOWN INDICATION
     Dosage: 25 MG, UNK
     Route: 065
     Dates: start: 20171030
  2. YERVOY [Suspect]
     Active Substance: IPILIMUMAB
     Indication: PRODUCT USED FOR UNKNOWN INDICATION
     Dosage: UNK
     Route: 065
     Dates: start: 20171203
  3. LENVIMA [Suspect]
     Active Substance: LENVATINIB
     Indication: HEPATIC CANCER
     Dosage: 4 MG, BID
     Route: 048
     Dates: start: 20161121
  4. OPDIVO [Suspect]
     Active Substance: NIVOLUMAB
     Indication: PRODUCT USED FOR UNKNOWN INDICATION
     Dosage: 100 MG, UNK
     Route: 041
     Dates: start: 20170213
  5. OPDIVO [Suspect]
     Active Substance: NIVOLUMAB
     Indication: HEPATIC CANCER
     Dosage: 3 MG/KG, Q2WK
     Route: 041
     Dates: start: 20150831, end: 20160406

REACTIONS (16)
  - Blood calcium increased [Unknown]
  - Diarrhoea [Unknown]
  - Pyrexia [Recovering/Resolving]
  - Product use in unapproved indication [Unknown]
  - Tonsillitis [Unknown]
  - Haemoptysis [Recovering/Resolving]
  - Palmar-plantar erythrodysaesthesia syndrome [Recovered/Resolved]
  - Pericoronitis [Unknown]
  - Depressed mood [Unknown]
  - Vomiting [Unknown]
  - Hypothyroidism [Unknown]
  - Musculoskeletal pain [Unknown]
  - Malignant neoplasm progression [Unknown]
  - Headache [Unknown]
  - Nausea [Unknown]
  - Chest pain [Unknown]

NARRATIVE: CASE EVENT DATE: 2017
